FAERS Safety Report 7983548-2 (Version None)
Quarter: 2011Q4

REPORT INFORMATION
  Report Type: 
  Country: None (occurrence: None)
  Receive Date: 20111215
  Receipt Date: 20111206
  Transmission Date: 20120403
  Serious: Yes (Other)
  Sender: FDA-Public Use
  Company Number: US-ASTRAZENECA-2009UW19354

PATIENT
  Age: 38 Year
  Sex: Female
  Weight: 162.4 kg

DRUGS (11)
  1. TRIAMTERENE AND HYDROCHLOROTHIAZIDE [Concomitant]
     Dosage: DAILY
  2. SYNTHROID [Concomitant]
  3. LEVOTHYROXINE SODIUM [Concomitant]
     Dosage: DAILY
  4. NAPROXEN [Concomitant]
  5. LAMICTAL [Concomitant]
  6. DIURETIC [Concomitant]
  7. TRIAM [Concomitant]
  8. SEROQUEL [Suspect]
     Indication: POST-TRAUMATIC STRESS DISORDER
     Route: 048
     Dates: start: 20010101
  9. SEROQUEL [Suspect]
     Route: 048
     Dates: start: 20020101
  10. KLONOPIN [Concomitant]
  11. ZOLOFT [Concomitant]

REACTIONS (19)
  - BLOOD POTASSIUM DECREASED [None]
  - FLASHBACK [None]
  - SWOLLEN TONGUE [None]
  - OFF LABEL USE [None]
  - HYPERTENSION [None]
  - MOOD ALTERED [None]
  - INSOMNIA [None]
  - DRUG DOSE OMISSION [None]
  - EYE MOVEMENT DISORDER [None]
  - MALAISE [None]
  - PRURITUS [None]
  - BLEPHAROSPASM [None]
  - ACTIVITIES OF DAILY LIVING IMPAIRED [None]
  - GALACTORRHOEA [None]
  - WITHDRAWAL SYNDROME [None]
  - WEIGHT INCREASED [None]
  - SELF INJURIOUS BEHAVIOUR [None]
  - OEDEMA PERIPHERAL [None]
  - APHAGIA [None]
